FAERS Safety Report 25771103 (Version 1)
Quarter: 2025Q3

REPORT INFORMATION
  Report Type: Report from Study
  Country: CA (occurrence: CA)
  Receive Date: 20250908
  Receipt Date: 20250908
  Transmission Date: 20251021
  Serious: Yes (Other)
  Sender: ROCHE
  Company Number: CA-002147023-NVSC2025CA129970

PATIENT
  Age: 51 Year
  Sex: Female

DRUGS (2)
  1. XOLAIR [Suspect]
     Active Substance: OMALIZUMAB
     Indication: Chronic spontaneous urticaria
     Dosage: 300 MG EVERY 4 WEEKS
     Route: 058
     Dates: start: 20241112, end: 202503
  2. XOLAIR [Suspect]
     Active Substance: OMALIZUMAB
     Route: 065

REACTIONS (3)
  - Mast cell activation syndrome [Recovering/Resolving]
  - Coronary artery disease [Recovering/Resolving]
  - Postural orthostatic tachycardia syndrome [Recovering/Resolving]

NARRATIVE: CASE EVENT DATE: 20250815
